FAERS Safety Report 11772493 (Version 1)
Quarter: 2015Q4

REPORT INFORMATION
  Report Type: Spontaneous
  Country: US (occurrence: None)
  Receive Date: 20151123
  Receipt Date: 20151123
  Transmission Date: 20160304
  Serious: No
  Sender: FDA-Public Use
  Company Number: None

PATIENT
  Age: 43 Year
  Sex: Female
  Weight: 61.24 kg

DRUGS (2)
  1. BARIUM SULFATE READI-CAT 2 [Suspect]
     Active Substance: BARIUM SULFATE
     Indication: SCAN WITH CONTRAST
     Dosage: DRINK ?1 BED, 1 MORNING?
     Route: 048
     Dates: start: 20151120, end: 20151121
  2. VITAMIN D3 [Concomitant]
     Active Substance: CHOLECALCIFEROL

REACTIONS (3)
  - Diarrhoea [None]
  - Gastrointestinal sounds abnormal [None]
  - Palpitations [None]

NARRATIVE: CASE EVENT DATE: 20151121
